FAERS Safety Report 23226701 (Version 1)
Quarter: 2023Q4

REPORT INFORMATION
  Report Type: Spontaneous
  Country: IT (occurrence: IT)
  Receive Date: 20231124
  Receipt Date: 20231124
  Transmission Date: 20240110
  Serious: Yes (Other)
  Sender: FDA-Public Use
  Company Number: IT-SUN PHARMACEUTICAL INDUSTRIES LTD-2023RR-419616

PATIENT
  Age: 72 Year
  Sex: Female

DRUGS (2)
  1. OXALIPLATIN [Suspect]
     Active Substance: OXALIPLATIN
     Indication: Colon cancer
     Dosage: OXALIPLATINO SUN FL 200 MG 40 ML: 130 MG/M2 Q 21 SECONDO SCHEMA XELOX
     Route: 040
     Dates: start: 20211123, end: 20211214
  2. CAPECITABINE [Concomitant]
     Active Substance: CAPECITABINE
     Indication: Colon cancer
     Dosage: CAPECITABINE ACCORD 500 MG CPR: 1,000 MG/M2 ORAL TWICE DAILY FOR 2 WEEKS (FOLLOWED BY ONE WEEK OFF)
     Route: 048
     Dates: start: 20211123, end: 20220217

REACTIONS (6)
  - Paraesthesia oral [Recovered/Resolved]
  - Dyspnoea [Recovered/Resolved]
  - Visual acuity reduced [Recovered/Resolved]
  - Drug hypersensitivity [Recovered/Resolved]
  - Tongue movement disturbance [Recovered/Resolved]
  - Myalgia [Recovered/Resolved]

NARRATIVE: CASE EVENT DATE: 20211214
